FAERS Safety Report 18653081 (Version 1)
Quarter: 2020Q4

REPORT INFORMATION
  Report Type: Spontaneous
  Country: ES (occurrence: ES)
  Receive Date: 20201223
  Receipt Date: 20201223
  Transmission Date: 20210114
  Serious: Yes (Other)
  Sender: FDA-Public Use
  Company Number: ES-ALKEM LABORATORIES LIMITED-ES-ALKEM-2019-10982

PATIENT
  Sex: Female

DRUGS (7)
  1. CYCLOPHOSPHAMIDE. [Concomitant]
     Active Substance: CYCLOPHOSPHAMIDE
     Indication: CHEMOTHERAPY
     Dosage: 600 MILLIGRAM/SQ. METER
     Route: 065
  2. METFORMIN HYDROCHLORIDE. [Suspect]
     Active Substance: METFORMIN HYDROCHLORIDE
     Indication: NEOADJUVANT THERAPY
     Dosage: 850 MILLIGRAM, BID
     Route: 048
  3. TRASTUZUMAB. [Concomitant]
     Active Substance: TRASTUZUMAB
     Dosage: 2 MILLIGRAM/KILOGRAM
     Route: 065
  4. PACLITAXEL. [Suspect]
     Active Substance: PACLITAXEL
     Indication: CHEMOTHERAPY
     Dosage: 80 MILLIGRAM/SQ. METER
     Route: 065
  5. TRASTUZUMAB. [Concomitant]
     Active Substance: TRASTUZUMAB
     Indication: CHEMOTHERAPY
     Dosage: 4 MILLIGRAM/KILOGRAM
     Route: 065
  6. FLUOROURACIL. [Concomitant]
     Active Substance: FLUOROURACIL
     Indication: CHEMOTHERAPY
     Dosage: 600 MILLIGRAM/SQ. METER
     Route: 065
  7. EPIRUBICIN [Concomitant]
     Active Substance: EPIRUBICIN
     Indication: CHEMOTHERAPY
     Dosage: 75 MILLIGRAM/SQ. METER
     Route: 065

REACTIONS (1)
  - Diarrhoea [Unknown]
